FAERS Safety Report 20482179 (Version 2)
Quarter: 2022Q1

REPORT INFORMATION
  Report Type: Report from Study
  Country: AU (occurrence: AU)
  Receive Date: 20220216
  Receipt Date: 20220322
  Transmission Date: 20220423
  Serious: Yes (Hospitalization, Other)
  Sender: FDA-Public Use
  Company Number: AU-JNJFOC-20220216411

PATIENT
  Sex: Male

DRUGS (1)
  1. IMBRUVICA [Suspect]
     Active Substance: IBRUTINIB
     Indication: Mantle cell lymphoma
     Route: 048
     Dates: start: 2018

REACTIONS (11)
  - Pancreatic carcinoma [Not Recovered/Not Resolved]
  - Tendon rupture [Not Recovered/Not Resolved]
  - Campylobacter infection [Recovered/Resolved]
  - Dry mouth [Unknown]
  - Biopsy [Unknown]
  - Stress [Unknown]
  - Weight decreased [Not Recovered/Not Resolved]
  - Platelet count decreased [Not Recovered/Not Resolved]
  - Fatigue [Not Recovered/Not Resolved]
  - Mouth ulceration [Not Recovered/Not Resolved]
  - Hypertension [Unknown]
